FAERS Safety Report 8599387-8 (Version None)
Quarter: 2012Q3

REPORT INFORMATION
  Report Type: 
  Country: None (occurrence: None)
  Receive Date: 20120816
  Receipt Date: 20120814
  Transmission Date: 20120928
  Serious: Yes (Life-Threatening)
  Sender: FDA-Public Use
  Company Number: PHEH2012US015897

PATIENT
  Sex: Female

DRUGS (13)
  1. PROVERA [Concomitant]
     Dosage: 1 DF (10 MG), DAILY
  2. LIPITOR [Concomitant]
     Dosage: 1 DF (40 MG), DAILY
  3. DIOVAN HCT [Suspect]
     Dosage: 1 DF (160/12.5 MG), DAILY
  4. FLUTICASONE PROPIONATE [Concomitant]
     Dosage: 2 DF (500/50 MG), DAILY
  5. ALBUTEROL [Concomitant]
     Dosage: UNK UKN, PRN
  6. ASPIRIN [Concomitant]
     Dosage: 1 DF (325 MG), DAILY
  7. PROTONIX [Concomitant]
     Dosage: 1 DF (40 MG), DAILY
  8. DIOVAN [Suspect]
  9. PLAVIX [Concomitant]
     Dosage: 1 DF (75 MG), DAILY
  10. VOLTAREN                           /00372303/ [Concomitant]
     Dosage: 1 DF (75 MG), DAILY
  11. ROPINIROLE [Concomitant]
     Dosage: 2 MG, UNK
  12. PROAIR (FLUTICASONE PROPIONATE) [Concomitant]
     Dosage: UNK UKN, PRN
  13. CALCIUM CARBONATE [Concomitant]
     Dosage: 1 DF (600 D), DAILY

REACTIONS (5)
  - FEELING ABNORMAL [None]
  - BRONCHITIS [None]
  - MALAISE [None]
  - FEELING DRUNK [None]
  - COUGH [None]
